FAERS Safety Report 18850284 (Version 1)
Quarter: 2021Q1

REPORT INFORMATION
  Report Type: Spontaneous
  Country: US (occurrence: US)
  Receive Date: 20210204
  Receipt Date: 20210204
  Transmission Date: 20210420
  Serious: Yes (Other)
  Sender: FDA-Public Use
  Company Number: US-AMGEN-USASP2021015073

PATIENT
  Age: 59 Year
  Sex: Male
  Weight: 114.74 kg

DRUGS (2)
  1. EPOETIN ALFA [Suspect]
     Active Substance: ERYTHROPOIETIN
     Indication: QUALITY OF LIFE DECREASED
     Dosage: UNK
     Route: 065
     Dates: start: 20200210
  2. DEFERASIROX. [Concomitant]
     Active Substance: DEFERASIROX
     Indication: QUALITY OF LIFE DECREASED
     Dosage: DOSE CHANGED
     Dates: start: 20191104, end: 20201026

REACTIONS (2)
  - Off label use [Unknown]
  - Cerebrovascular accident [Recovering/Resolving]

NARRATIVE: CASE EVENT DATE: 2020
